FAERS Safety Report 10379768 (Version 2)
Quarter: 2014Q3

REPORT INFORMATION
  Report Type: Spontaneous
  Country: AU (occurrence: AU)
  Receive Date: 20140812
  Receipt Date: 20140827
  Transmission Date: 20150326
  Serious: Yes (Hospitalization)
  Sender: FDA-Public Use
  Company Number: AU-ACORDA-ACO_105454_2014

PATIENT
  Sex: Female

DRUGS (1)
  1. FAMPYRA [Suspect]
     Active Substance: DALFAMPRIDINE
     Indication: MULTIPLE SCLEROSIS
     Dosage: 10 MG, BID
     Route: 048

REACTIONS (4)
  - Paranoia [Recovered/Resolved]
  - Sleep disorder [Recovered/Resolved]
  - Delusional disorder, unspecified type [Recovered/Resolved]
  - Confusional state [Recovered/Resolved]
